FAERS Safety Report 5393119-2 (Version None)
Quarter: 2007Q3

REPORT INFORMATION
  Report Type: 
  Country: None (occurrence: None)
  Receive Date: 20070719
  Receipt Date: 20070705
  Transmission Date: 20080115
  Serious: Yes (Other)
  Sender: FDA-Public Use
  Company Number: STI-2007-00911

PATIENT
  Age: 18 Year
  Sex: Male

DRUGS (1)
  1. DUAC [Suspect]
     Indication: ACNE
     Dosage: TOPICAL
     Route: 061
     Dates: start: 20070301, end: 20070701

REACTIONS (2)
  - COLITIS ULCERATIVE [None]
  - PAIN IN EXTREMITY [None]
